FAERS Safety Report 14423569 (Version 2)
Quarter: 2018Q1

REPORT INFORMATION
  Report Type: Spontaneous
  Country: US (occurrence: US)
  Receive Date: 20180123
  Receipt Date: 20180307
  Transmission Date: 20180509
  Serious: No
  Sender: FDA-Public Use
  Company Number: US-PFIZER INC-2018028328

PATIENT
  Age: 73 Year
  Sex: Female
  Weight: 59.42 kg

DRUGS (2)
  1. IBRANCE [Suspect]
     Active Substance: PALBOCICLIB
     Indication: NEOPLASM MALIGNANT
     Dosage: 125MG CAPSULE, 1 PER DAY BY MOUTH, 21 DAYS ON AND 7 DAYS OFF
     Route: 048
     Dates: start: 2017
  2. HYDROCODONE [Concomitant]
     Active Substance: HYDROCODONE
     Indication: PAIN
     Dosage: 1 TABLET EVERY 4 HOURS AS NEEDED
     Dates: start: 201707

REACTIONS (1)
  - Weight increased [Unknown]
